FAERS Safety Report 7939751-0 (Version None)
Quarter: 2011Q4

REPORT INFORMATION
  Report Type: 
  Country: None (occurrence: None)
  Receive Date: 20111125
  Receipt Date: 20111121
  Transmission Date: 20120403
  Serious: Yes (Death, Other)
  Sender: FDA-Public Use
  Company Number: PHHY2011BR102151

PATIENT
  Sex: Male

DRUGS (3)
  1. EXELON [Suspect]
     Indication: DEMENTIA ALZHEIMER'S TYPE
     Dosage: (9MG/5CM2) 4.6 MG, DAILY
     Route: 062
     Dates: start: 20110201
  2. MEMANTINE HYDROCHLORIDE [Suspect]
     Indication: DEMENTIA ALZHEIMER'S TYPE
     Dosage: 1 DF, BID (ONE IN THE MORNING AND ONE IN THE NIGHT)
  3. EXELON [Suspect]
     Dosage: (9MG/5CM2) 4.6 MG, DAILY
     Route: 062

REACTIONS (13)
  - NERVOUSNESS [None]
  - ABNORMAL BEHAVIOUR [None]
  - MUSCULOSKELETAL STIFFNESS [None]
  - DEATH [None]
  - FATIGUE [None]
  - SUICIDAL IDEATION [None]
  - CONSTIPATION [None]
  - DYSPHAGIA [None]
  - INFARCTION [None]
  - APATHY [None]
  - MOVEMENT DISORDER [None]
  - PYREXIA [None]
  - HAEMORRHAGE URINARY TRACT [None]
